FAERS Safety Report 23121862 (Version 2)
Quarter: 2023Q4

REPORT INFORMATION
  Report Type: Spontaneous
  Country: US (occurrence: US)
  Receive Date: 20231030
  Receipt Date: 20231222
  Transmission Date: 20240110
  Serious: No
  Sender: FDA-Public Use
  Company Number: US-SA-SAC20231024000758

PATIENT
  Sex: Male

DRUGS (1)
  1. DUPIXENT [Suspect]
     Active Substance: DUPILUMAB
     Indication: Dermatitis
     Dosage: DOSE: 300 MG FREQUENCY: EVERY OTHER WEEK (QOW)
     Route: 058

REACTIONS (6)
  - Stress [Unknown]
  - Malaise [Unknown]
  - Hernia [Unknown]
  - Rash [Unknown]
  - Eczema [Unknown]
  - Product use in unapproved indication [Unknown]
